FAERS Safety Report 8449025-X (Version None)
Quarter: 2012Q2

REPORT INFORMATION
  Report Type: 
  Country: None (occurrence: None)
  Receive Date: 20120619
  Receipt Date: 20120611
  Transmission Date: 20120825
  Serious: Yes (Hospitalization, Other)
  Sender: FDA-Public Use
  Company Number: US-CELGENEUS-163-21880-12042589

PATIENT
  Sex: Female
  Weight: 65.376 kg

DRUGS (19)
  1. AMLODIPINE [Concomitant]
     Dosage: 1
     Route: 048
  2. KLOR-CON [Concomitant]
     Dosage: 1
     Route: 048
  3. TRAMADOL HCL [Concomitant]
     Route: 065
  4. ACETAMINOPHEN [Concomitant]
     Dosage: 2
     Route: 048
  5. SENNA-MINT WAF [Concomitant]
     Dosage: 1
     Route: 048
  6. HCTZ/TRIAMT [Concomitant]
     Dosage: 1/2
     Route: 048
  7. ACETAMINOPHEN [Concomitant]
     Route: 065
  8. ALLOPURINOL [Concomitant]
     Dosage: 1
     Route: 048
  9. LASIX [Concomitant]
     Dosage: 1
     Route: 048
  10. REVLIMID [Suspect]
     Indication: MULTIPLE MYELOMA
     Dosage: 10 GRAM
     Route: 048
     Dates: start: 20091001
  11. METFORMIN HCL [Concomitant]
     Dosage: 1
     Route: 048
  12. MAGNESIUM OXIDE [Concomitant]
     Dosage: 1
     Route: 048
  13. PERCOCET [Concomitant]
     Route: 065
  14. ASPIRIN [Concomitant]
     Dosage: 1
     Route: 048
  15. OXYCODONE HCL [Concomitant]
     Dosage: 1-2
     Route: 048
  16. LEVOFLOXACIN [Concomitant]
     Dosage: 1
     Route: 048
  17. DIOVAN [Concomitant]
     Dosage: 160-12.5MG
     Route: 048
  18. MACROBID [Concomitant]
     Dosage: 1
     Route: 048
  19. OMEPRAZOLE [Concomitant]
     Dosage: 1
     Route: 048

REACTIONS (6)
  - OEDEMA PERIPHERAL [None]
  - RENAL FAILURE ACUTE [None]
  - PANCYTOPENIA [None]
  - PATELLA FRACTURE [None]
  - CLOSTRIDIUM DIFFICILE COLITIS [None]
  - NASOPHARYNGITIS [None]
